FAERS Safety Report 8214129-3 (Version None)
Quarter: 2012Q1

REPORT INFORMATION
  Report Type: 
  Country: None (occurrence: None)
  Receive Date: 20120314
  Receipt Date: 20120314
  Transmission Date: 20120608
  Serious: Yes (Hospitalization)
  Sender: FDA-Public Use
  Company Number: None

PATIENT
  Age: 82 Year
  Sex: Male
  Weight: 94 kg

DRUGS (16)
  1. LOVENOX [Suspect]
     Indication: ATRIAL FIBRILLATION
     Dosage: 90 MG BID SQ  RECENT (1 WK AGO)
     Route: 058
  2. GABAPENTIN [Concomitant]
  3. VIT E [Concomitant]
  4. CLINDAMYCIN [Concomitant]
  5. CALCIUM CARB [Concomitant]
  6. COUMADIN [Suspect]
     Indication: ATRIAL FIBRILLATION
     Dosage: 5MG DAILY PO RECENT (1 WK AGO)
     Route: 048
  7. MIRTAZAPINE [Concomitant]
  8. ALLEGRA [Concomitant]
  9. LOPRESSOR [Concomitant]
  10. PERCOCET [Concomitant]
  11. M.V.I. [Concomitant]
  12. VIT D3 [Concomitant]
  13. SYNTHROID [Concomitant]
  14. FISH OIL [Concomitant]
  15. ZOLOFT [Concomitant]
  16. FLOMAX [Concomitant]

REACTIONS (5)
  - ANKLE FRACTURE [None]
  - DUODENAL ULCER [None]
  - ANAEMIA [None]
  - HYPOTENSION [None]
  - FALL [None]
